FAERS Safety Report 5407957-0 (Version None)
Quarter: 2007Q3

REPORT INFORMATION
  Report Type: 
  Country: None (occurrence: None)
  Receive Date: 20070727
  Receipt Date: 20070716
  Transmission Date: 20080115
  Serious: Yes (Hospitalization)
  Sender: FDA-Public Use
  Company Number: THYM-11449

PATIENT
  Age: 56 Year
  Sex: Male
  Weight: 116.5744 kg

DRUGS (22)
  1. THYMOGLOBULIN [Suspect]
     Indication: HEART TRANSPLANT REJECTION
     Dosage: 1.5 MG/KG QD IV
     Route: 042
     Dates: start: 20070308, end: 20070310
  2. THYMOGLOBULIN [Suspect]
     Indication: HEART TRANSPLANT REJECTION
     Dosage: 0.75 MG/KG QD IV
     Route: 042
     Dates: start: 20070311, end: 20070311
  3. THYMOGLOBULIN [Suspect]
     Indication: HEART TRANSPLANT REJECTION
     Dosage: 0.5 MG/KG QD IV
     Route: 042
     Dates: start: 20070312, end: 20070312
  4. THYMOGLOBULIN [Suspect]
     Indication: HEART TRANSPLANT REJECTION
     Dosage: 0.75 MG/KG QD IV
     Route: 042
     Dates: start: 20070313, end: 20070314
  5. SOLU-MEDROL [Concomitant]
  6. BENADRYL [Concomitant]
  7. TAGAMET [Concomitant]
  8. TYLENOL (CAPLET) [Concomitant]
  9. PROGRAF [Concomitant]
  10. CELLCEPT [Concomitant]
  11. ALTACE [Concomitant]
  12. CIALIS [Concomitant]
  13. GLIPIZIDE [Concomitant]
  14. NIASPAN [Concomitant]
  15. COMBIVENT [Concomitant]
  16. AMBIEN [Concomitant]
  17. CELEXA [Concomitant]
  18. WELLBUTRIN [Concomitant]
  19. NEXIUM [Concomitant]
  20. ASPIRIN [Concomitant]
  21. VYTORIN [Concomitant]
  22. NOVOLOG [Concomitant]

REACTIONS (2)
  - BLOOD GLUCOSE INCREASED [None]
  - SERUM SICKNESS [None]
